FAERS Safety Report 20690103 (Version 9)
Quarter: 2022Q3

REPORT INFORMATION
  Report Type: Report from Study
  Country: BR (occurrence: BR)
  Receive Date: 20220408
  Receipt Date: 20220926
  Transmission Date: 20221027
  Serious: Yes (Hospitalization)
  Sender: FDA-Public Use
  Company Number: BR-JNJFOC-20220402667

PATIENT
  Age: 50 Year
  Sex: Female
  Weight: 82 kg

DRUGS (12)
  1. SPRAVATO [Suspect]
     Active Substance: ESKETAMINE
     Indication: Major depression
     Dosage: 28 MG OF ESKETAMINE IN PACKS OF 1 DEVICE OF 0.2 ML 2X WEEK.
     Dates: start: 20220303
  2. SPRAVATO [Suspect]
     Active Substance: ESKETAMINE
     Dosage: NEXT DOSE WILL BE ON 11-APR-2022.
     Dates: start: 202204
  3. ARIPIPRAZOLE [Concomitant]
     Active Substance: ARIPIPRAZOLE
     Dosage: 10
  4. ARIPIPRAZOLE [Concomitant]
     Active Substance: ARIPIPRAZOLE
     Dosage: FROM 10 TO 15
     Dates: start: 20220624
  5. ZOLPIDEM [Concomitant]
     Active Substance: ZOLPIDEM TARTRATE
  6. RIVOTRIL [Concomitant]
     Active Substance: CLONAZEPAM
  7. RIVOTRIL [Concomitant]
     Active Substance: CLONAZEPAM
     Dosage: 2 PILLS PER DAY
     Dates: start: 20220624
  8. AMITRIPTYLINE [Concomitant]
     Active Substance: AMITRIPTYLINE
  9. LAMOTRIGINE [Concomitant]
     Active Substance: LAMOTRIGINE
  10. VENLAFAXINE [Concomitant]
     Active Substance: VENLAFAXINE HYDROCHLORIDE
  11. NEOZINE [LEVOMEPROMAZINE] [Concomitant]
  12. CLONAZEPAM [Concomitant]
     Active Substance: CLONAZEPAM

REACTIONS (5)
  - Depression [Not Recovered/Not Resolved]
  - Urinary tract infection [Recovered/Resolved]
  - Dizziness [Recovered/Resolved]
  - Nausea [Recovered/Resolved]
  - Product dose omission issue [Unknown]

NARRATIVE: CASE EVENT DATE: 20220101
